FAERS Safety Report 23935049 (Version 1)
Quarter: 2024Q2

REPORT INFORMATION
  Report Type: Spontaneous
  Country: EG (occurrence: EG)
  Receive Date: 20240604
  Receipt Date: 20240604
  Transmission Date: 20240716
  Serious: Yes (Hospitalization, Other)
  Sender: FDA-Public Use
  Company Number: None

PATIENT
  Age: 43 Year
  Sex: Female

DRUGS (2)
  1. ACTRAPID [Suspect]
     Active Substance: INSULIN HUMAN
     Indication: Product used for unknown indication
     Dosage: UNK
     Route: 058
  2. ACTRAPID [Suspect]
     Active Substance: INSULIN HUMAN
     Dosage: UNK(REDUCED DOSE)
     Route: 058

REACTIONS (5)
  - Diabetic ketoacidosis [Not Recovered/Not Resolved]
  - Urinary tract infection [Unknown]
  - Haematuria [Unknown]
  - Rash [Unknown]
  - Papule [Unknown]
